FAERS Safety Report 20752051 (Version 1)
Quarter: 2022Q2

REPORT INFORMATION
  Report Type: Report from Study
  Country: US (occurrence: US)
  Receive Date: 20220426
  Receipt Date: 20220426
  Transmission Date: 20220720
  Serious: Yes (Hospitalization)
  Sender: FDA-Public Use
  Company Number: US-KERYX BIOPHARMACEUTICALS INC.-US-AKEB-22-019678

PATIENT

DRUGS (6)
  1. TETRAFERRIC TRICITRATE DECAHYDRATE [Suspect]
     Active Substance: TETRAFERRIC TRICITRATE DECAHYDRATE
     Indication: Hyperphosphataemia
     Dosage: UNK
     Route: 065
     Dates: start: 20211214
  2. NIFEDIPINE [Concomitant]
     Active Substance: NIFEDIPINE
     Indication: Hypertension
     Dosage: 60 MILLIGRAM, BID
     Route: 048
     Dates: start: 20210603
  3. PATIROMER [Concomitant]
     Active Substance: PATIROMER
     Indication: Hyperkalaemia
     Dosage: 8.4 MILLIGRAM, QD
     Route: 048
     Dates: start: 20211015
  4. CLONIDINE [Concomitant]
     Active Substance: CLONIDINE
     Indication: Hypertension
     Dosage: 0.1 MILLIGRAM, PRN
     Route: 048
     Dates: start: 20210527
  5. INSULIN NOS [Concomitant]
     Active Substance: INSULIN NOS
     Indication: Type 1 diabetes mellitus
     Dosage: 5 UNIT, TID
     Route: 058
     Dates: start: 20210527
  6. INSULIN GLARGINE [Concomitant]
     Active Substance: INSULIN GLARGINE
     Indication: Type 1 diabetes mellitus
     Dosage: 12 UNIT, QD
     Route: 058
     Dates: start: 20210527

REACTIONS (3)
  - Endocarditis [Recovered/Resolved]
  - Haemophilus bacteraemia [Recovered/Resolved]
  - Septic cerebral embolism [Recovered/Resolved]

NARRATIVE: CASE EVENT DATE: 20220401
